FAERS Safety Report 9852151 (Version 4)
Quarter: 2015Q1

REPORT INFORMATION
  Report Type: Spontaneous
  Country: US (occurrence: US)
  Receive Date: 20140129
  Receipt Date: 20150109
  Transmission Date: 20150721
  Serious: Yes (Hospitalization)
  Sender: FDA-Public Use
  Company Number: US-BAYER-2014-012443

PATIENT
  Age: 25 Year
  Sex: Female
  Weight: 90.7 kg

DRUGS (2)
  1. HYDROCODONE [Concomitant]
     Active Substance: HYDROCODONE
  2. MIRENA [Suspect]
     Active Substance: LEVONORGESTREL
     Indication: CONTRACEPTION
     Dosage: 20 MCG/24HR, CONT
     Route: 015
     Dates: start: 20090309, end: 20091013

REACTIONS (15)
  - Device issue [None]
  - Pre-eclampsia [None]
  - Pregnancy with contraceptive device [None]
  - Caesarean section [None]
  - Medical device discomfort [None]
  - Medical device pain [None]
  - Depression [None]
  - Anxiety [None]
  - Uterine perforation [None]
  - Medication error [None]
  - Premature delivery [None]
  - Injury [None]
  - Pain [None]
  - Pulmonary oedema [None]
  - Cardiac failure congestive [None]

NARRATIVE: CASE EVENT DATE: 2009
